FAERS Safety Report 20571120 (Version 3)
Quarter: 2022Q1

REPORT INFORMATION
  Report Type: Spontaneous
  Country: TR (occurrence: TR)
  Receive Date: 20220309
  Receipt Date: 20220329
  Transmission Date: 20220423
  Serious: Yes (Hospitalization, Other)
  Sender: FDA-Public Use
  Company Number: TR-BoehringerIngelheim-2022-BI-157358

PATIENT
  Age: 76 Year
  Sex: Male
  Weight: 85 kg

DRUGS (4)
  1. PRAMIPEXOLE [Suspect]
     Active Substance: PRAMIPEXOLE
     Indication: Restless legs syndrome
     Dosage: THE PATIENT USED ADDITIONAL PRAMIPEXOLE DOSES WHEN HIS LEG PAIN DID NOT RESOLVE
  2. METFORMIN [Concomitant]
     Active Substance: METFORMIN HYDROCHLORIDE
     Indication: Product used for unknown indication
  3. lercadipine 10 mg [Concomitant]
     Indication: Hypertension
  4. DOXAZOSIN MESYLATE [Concomitant]
     Active Substance: DOXAZOSIN MESYLATE
     Indication: Hypertension

REACTIONS (1)
  - Atrioventricular block [Recovered/Resolved]
